FAERS Safety Report 11505614 (Version 5)
Quarter: 2016Q1

REPORT INFORMATION
  Report Type: Spontaneous
  Country: JP (occurrence: JP)
  Receive Date: 20150915
  Receipt Date: 20160210
  Transmission Date: 20160525
  Serious: Yes (Hospitalization)
  Sender: FDA-Public Use
  Company Number: JP-ROCHE-1634273

PATIENT
  Age: 66 Year
  Sex: Male
  Weight: 62 kg

DRUGS (7)
  1. ONON [Concomitant]
     Active Substance: PRANLUKAST
     Route: 065
     Dates: start: 200902
  2. DEPAS [Concomitant]
     Active Substance: ETIZOLAM
     Route: 065
     Dates: start: 201105
  3. PREDNISOLONE. [Suspect]
     Active Substance: PREDNISOLONE
     Indication: ASTHMA
     Route: 048
     Dates: start: 20120409, end: 20120415
  4. UNIPHYL [Concomitant]
     Active Substance: THEOPHYLLINE ANHYDROUS
     Route: 065
     Dates: start: 201510
  5. XOLAIR [Suspect]
     Active Substance: OMALIZUMAB
     Indication: ASTHMA
     Route: 058
     Dates: start: 20091217, end: 20120409
  6. MUCOSOLATE [Concomitant]
     Active Substance: AMBROXOL HYDROCHLORIDE
     Route: 065
     Dates: start: 200608
  7. ADOAIR [Concomitant]
     Active Substance: FLUTICASONE PROPIONATE\SALMETEROL XINAFOATE
     Route: 065
     Dates: start: 200807

REACTIONS (10)
  - Pneumonia bacterial [Recovered/Resolved]
  - Fall [Unknown]
  - Acute respiratory distress syndrome [Recovered/Resolved]
  - Immobile [Unknown]
  - Asthma [Unknown]
  - Blood lactate dehydrogenase increased [Recovered/Resolved]
  - Pain [Unknown]
  - Monocyte percentage increased [Unknown]
  - Lymphocyte percentage decreased [Unknown]
  - Neutrophil percentage increased [Unknown]

NARRATIVE: CASE EVENT DATE: 20120409
